FAERS Safety Report 6329069-4 (Version None)
Quarter: 2009Q3

REPORT INFORMATION
  Report Type: 
  Country: None (occurrence: None)
  Receive Date: 20090826
  Receipt Date: 20090820
  Transmission Date: 20100115
  Serious: Yes (Hospitalization)
  Sender: FDA-Public Use
  Company Number: PHHY2009TW34200

PATIENT
  Age: 82 Year
  Sex: Female

DRUGS (1)
  1. ACLASTA [Suspect]
     Indication: OSTEOPOROSIS POSTMENOPAUSAL
     Dosage: 5 MG/100 CC ONCE A YEAR
     Route: 042
     Dates: start: 20090803

REACTIONS (4)
  - ILEUS [None]
  - NASOPHARYNGITIS [None]
  - PAIN [None]
  - TOOTH DISORDER [None]
